FAERS Safety Report 19070140 (Version 1)
Quarter: 2021Q1

REPORT INFORMATION
  Report Type: Spontaneous
  Country: DE (occurrence: DE)
  Receive Date: 20210329
  Receipt Date: 20210329
  Transmission Date: 20210420
  Serious: Yes (Life-Threatening, Hospitalization, Disabling)
  Sender: FDA-Public Use
  Company Number: DE-PFIZER INC-2021324014

PATIENT
  Age: 36 Year
  Sex: Male
  Weight: 98 kg

DRUGS (2)
  1. PROMETHAZINE [Concomitant]
     Active Substance: PROMETHAZINE HYDROCHLORIDE
     Indication: DEPRESSION
     Dosage: DAILY DOSE: 25 MG MILLGRAM(S) EVERY DAYS
     Route: 048
  2. XELJANZ [Suspect]
     Active Substance: TOFACITINIB CITRATE
     Indication: COLITIS ULCERATIVE
     Dosage: DAILY DOSE: 20 MG MILLGRAM(S) EVERY DAYS 2 SEPARATED DOSES
     Route: 048
     Dates: start: 202011, end: 20210108

REACTIONS (7)
  - Colitis [Not Recovered/Not Resolved]
  - Swelling [Not Recovered/Not Resolved]
  - Fournier^s gangrene [Not Recovered/Not Resolved]
  - Rectal abscess [Not Recovered/Not Resolved]
  - Skin necrosis [Not Recovered/Not Resolved]
  - Anal fistula [Not Recovered/Not Resolved]
  - Rectal perforation [Not Recovered/Not Resolved]

NARRATIVE: CASE EVENT DATE: 20201201
